FAERS Safety Report 6155418-6 (Version None)
Quarter: 2009Q2

REPORT INFORMATION
  Report Type: 
  Country: None (occurrence: None)
  Receive Date: 20090415
  Receipt Date: 20090407
  Transmission Date: 20091009
  Serious: Yes (Other)
  Sender: FDA-Public Use
  Company Number: GB-GILEAD-2009-0021347

PATIENT
  Sex: Female
  Weight: 92 kg

DRUGS (5)
  1. TRUVADA [Suspect]
     Indication: HIV INFECTION
     Route: 048
     Dates: start: 20090127, end: 20090324
  2. FELODIPINE [Concomitant]
     Route: 048
  3. THYROXINE [Concomitant]
  4. NEVIRAPINE [Concomitant]
     Indication: HIV INFECTION
     Dates: start: 20080319
  5. NEVIRAPINE [Concomitant]
     Route: 048
     Dates: start: 20010901, end: 20080122

REACTIONS (2)
  - PROTEINURIA [None]
  - URINE PROTEIN/CREATININE RATIO INCREASED [None]
